FAERS Safety Report 14000415 (Version 1)
Quarter: 2017Q3

REPORT INFORMATION
  Report Type: Spontaneous
  Country: BR (occurrence: BR)
  Receive Date: 20170922
  Receipt Date: 20170922
  Transmission Date: 20171128
  Serious: Yes (Other)
  Sender: FDA-Public Use
  Company Number: BR-DSJP-DSU-2017-139030

PATIENT

DRUGS (1)
  1. OLMETEC HCT [Suspect]
     Active Substance: HYDROCHLOROTHIAZIDE\OLMESARTAN MEDOXOMIL
     Indication: HYPERTENSION
     Dosage: 80/25 MG, QD
     Route: 065
     Dates: start: 2013

REACTIONS (3)
  - Infarction [Recovered/Resolved]
  - Overdose [Not Recovered/Not Resolved]
  - Stent placement [Recovered/Resolved]

NARRATIVE: CASE EVENT DATE: 201308
